FAERS Safety Report 8166864-3 (Version None)
Quarter: 2012Q1

REPORT INFORMATION
  Report Type: 
  Country: None (occurrence: None)
  Receive Date: 20120227
  Receipt Date: 20120224
  Transmission Date: 20120608
  Serious: Yes (Death)
  Sender: FDA-Public Use
  Company Number: CN-ROCHE-1042938

PATIENT
  Sex: Male

DRUGS (1)
  1. MYCOPHENOLATE MOFETIL (CELLCEPT) [Suspect]
     Indication: AUTOIMMUNE DISORDER
     Route: 048

REACTIONS (2)
  - DEATH [None]
  - OFF LABEL USE [None]
